FAERS Safety Report 9916099 (Version 1)
Quarter: 2014Q1

REPORT INFORMATION
  Report Type: Spontaneous
  Country: BR (occurrence: BR)
  Receive Date: 20140221
  Receipt Date: 20140221
  Transmission Date: 20141002
  Serious: Yes (Other)
  Sender: FDA-Public Use
  Company Number: BR-BAYER-2014-022557

PATIENT
  Age: 44 Year
  Sex: Female

DRUGS (1)
  1. CIPRO [Suspect]
     Indication: PRODUCT USED FOR UNKNOWN INDICATION
     Dosage: 400 MG, ONCE
     Route: 042
     Dates: start: 20140207, end: 20140207

REACTIONS (3)
  - Hyperaemia [Recovered/Resolved]
  - Petechiae [Recovered/Resolved]
  - Pruritus generalised [Recovered/Resolved]
